FAERS Safety Report 8501809-5 (Version None)
Quarter: 2012Q3

REPORT INFORMATION
  Report Type: 
  Country: None (occurrence: None)
  Receive Date: 20120705
  Receipt Date: 20120705
  Transmission Date: 20120928
  Serious: Yes (Hospitalization, Other)
  Sender: FDA-Public Use
  Company Number: None

PATIENT
  Sex: Male

DRUGS (2)
  1. NAPROXEN SODIUM [Suspect]
     Indication: ARTHRITIS
     Dosage: 550MG ONCE A DAY PO
     Route: 048
     Dates: start: 20120401, end: 20120703
  2. BLOOD PRESSURE MEDICATION [Concomitant]

REACTIONS (1)
  - RASH [None]
